FAERS Safety Report 17367895 (Version 4)
Quarter: 2020Q2

REPORT INFORMATION
  Report Type: Spontaneous
  Country: US (occurrence: US)
  Receive Date: 20200204
  Receipt Date: 20200513
  Transmission Date: 20200713
  Serious: No
  Sender: FDA-Public Use
  Company Number: US-PFIZER INC-2019551584

PATIENT
  Age: 74 Year
  Sex: Male
  Weight: 104.31 kg

DRUGS (3)
  1. INLYTA [Suspect]
     Active Substance: AXITINIB
     Indication: RENAL CANCER
     Dosage: 5 MG, TWICE DAILY
     Route: 048
     Dates: start: 20191230
  2. KEYTRUDA [Concomitant]
     Active Substance: PEMBROLIZUMAB
     Dosage: UNK (INFUSION OF KEYTRUDA- ONCE EVERY 3 WEEKS)
     Dates: start: 20200113
  3. INLYTA [Suspect]
     Active Substance: AXITINIB
     Dosage: 5 MG, 2X/DAY
     Dates: start: 20200113

REACTIONS (6)
  - Anosmia [Unknown]
  - Nausea [Recovering/Resolving]
  - Fatigue [Recovered/Resolved]
  - Ageusia [Unknown]
  - Nasopharyngitis [Recovered/Resolved]
  - Appetite disorder [Unknown]
